FAERS Safety Report 7529909-7 (Version None)
Quarter: 2011Q2

REPORT INFORMATION
  Report Type: 
  Country: None (occurrence: None)
  Receive Date: 20110531
  Receipt Date: 20110525
  Transmission Date: 20111010
  Serious: Yes (Hospitalization)
  Sender: FDA-Public Use
  Company Number: 2010SP057063

PATIENT
  Age: 40 Year
  Sex: Female
  Weight: 81.6475 kg

DRUGS (2)
  1. IBUPROFEN [Concomitant]
  2. NUVARING [Suspect]
     Indication: CONTRACEPTION
     Dosage: QM; VAG
     Route: 067
     Dates: start: 20070701, end: 20081129

REACTIONS (10)
  - PAIN [None]
  - PULMONARY INFARCTION [None]
  - PULMONARY EMBOLISM [None]
  - DYSMENORRHOEA [None]
  - SCAR [None]
  - EMOTIONAL DISORDER [None]
  - HEADACHE [None]
  - PULMONARY HAEMORRHAGE [None]
  - HYPERCOAGULATION [None]
  - MENTAL DISORDER [None]
